FAERS Safety Report 25337590 (Version 1)
Quarter: 2025Q2

REPORT INFORMATION
  Report Type: Spontaneous
  Country: GB (occurrence: GB)
  Receive Date: 20250520
  Receipt Date: 20250520
  Transmission Date: 20250717
  Serious: Yes (Other)
  Sender: EMD SERONO INC
  Company Number: GB-Merck Healthcare KGaA-2025024057

PATIENT
  Sex: Female

DRUGS (1)
  1. SAIZEN [Suspect]
     Active Substance: SOMATROPIN
     Indication: Turner^s syndrome
     Dates: start: 20200122

REACTIONS (6)
  - Autism spectrum disorder [Unknown]
  - Fatigue [Unknown]
  - Loss of consciousness [Unknown]
  - Ill-defined disorder [Unknown]
  - Attention deficit hyperactivity disorder [Unknown]
  - Product dose omission issue [Unknown]
